FAERS Safety Report 18759011 (Version 2)
Quarter: 2021Q1

REPORT INFORMATION
  Report Type: Spontaneous
  Country: US (occurrence: US)
  Receive Date: 20210119
  Receipt Date: 20210331
  Transmission Date: 20210419
  Serious: No
  Sender: FDA-Public Use
  Company Number: US-PFIZER INC-2021029966

PATIENT
  Age: 47 Year
  Sex: Female

DRUGS (1)
  1. XELJANZ [Suspect]
     Active Substance: TOFACITINIB CITRATE
     Indication: RHEUMATOID ARTHRITIS
     Dosage: 5 MG, 2X/DAY
     Route: 048
     Dates: start: 202012

REACTIONS (5)
  - Ear infection [Recovering/Resolving]
  - Ear discomfort [Unknown]
  - Ear pain [Unknown]
  - Rhinitis allergic [Unknown]
  - Eye allergy [Unknown]

NARRATIVE: CASE EVENT DATE: 20210111
